FAERS Safety Report 4294744-2 (Version None)
Quarter: 2004Q1

REPORT INFORMATION
  Report Type: 
  Country: None (occurrence: None)
  Receive Date: 20040211
  Receipt Date: 20040122
  Transmission Date: 20041129
  Serious: Yes (Hospitalization)
  Sender: FDA-Public Use
  Company Number: JP_031102154

PATIENT
  Age: 56 Year
  Sex: Female
  Weight: 51 kg

DRUGS (3)
  1. HUMALOG [Suspect]
     Indication: DIABETES MELLITUS INSULIN-DEPENDENT
     Dosage: 36 U/DAY
     Dates: start: 20011201, end: 20031101
  2. LAMISIL [Concomitant]
  3. MUCOSTA (REBAMIPIDE) [Concomitant]

REACTIONS (3)
  - HEPATIC FUNCTION ABNORMAL [None]
  - HYPERGLYCAEMIA [None]
  - LYMPHOCYTE STIMULATION TEST POSITIVE [None]
